FAERS Safety Report 4867659-6 (Version None)
Quarter: 2005Q4

REPORT INFORMATION
  Report Type: 
  Country: None (occurrence: None)
  Receive Date: 20051222
  Receipt Date: 20051222
  Transmission Date: 20060501
  Serious: Yes (Other)
  Sender: FDA-Public Use
  Company Number: None

PATIENT
  Age: 80 Year
  Sex: Female
  Weight: 104.3273 kg

DRUGS (1)
  1. LIPITOR [Suspect]
     Indication: LOW DENSITY LIPOPROTEIN INCREASED
     Dosage: 1 DAILY    AT NIGHT    PO
     Route: 048
     Dates: start: 20050222, end: 20050925

REACTIONS (7)
  - ASTHENIA [None]
  - BACK PAIN [None]
  - FEMUR FRACTURE [None]
  - GROIN PAIN [None]
  - HERNIA [None]
  - MOBILITY DECREASED [None]
  - SPINAL OSTEOARTHRITIS [None]
